FAERS Safety Report 12494552 (Version 1)
Quarter: 2016Q2

REPORT INFORMATION
  Report Type: Report from Study
  Country: US (occurrence: US)
  Receive Date: 20160624
  Receipt Date: 20160624
  Transmission Date: 20160815
  Serious: Yes (Other)
  Sender: FDA-Public Use
  Company Number: US-ROCHE-1779043

PATIENT

DRUGS (6)
  1. SODIUM BICARBONATE. [Concomitant]
     Active Substance: SODIUM BICARBONATE
     Route: 042
  2. TEMOZOLOMIDE. [Suspect]
     Active Substance: TEMOZOLOMIDE
     Indication: CENTRAL NERVOUS SYSTEM LYMPHOMA
     Dosage: DAILY FOR 5 DAYS ON WEEKS 4 AND 8
     Route: 048
  3. TEMOZOLOMIDE. [Suspect]
     Active Substance: TEMOZOLOMIDE
     Dosage: DAILY FOR 5 DAYS WAS ADMINISTERED ON WEEKS 14, 18, 22, 26, 30, 34, 38, 42, 46, AND 50 FOR A TOTAL OF
     Route: 048
  4. RITUXIMAB [Suspect]
     Active Substance: RITUXIMAB
     Indication: CENTRAL NERVOUS SYSTEM LYMPHOMA
     Dosage: 3 DAYS BEFORE THE INITIAL MTX TREATMENT
     Route: 042
  5. METHOTREXATE [Suspect]
     Active Substance: METHOTREXATE
     Indication: CENTRAL NERVOUS SYSTEM LYMPHOMA
     Dosage: 3.5 G/M2 WAS ADMINISTERED ON WEEKS 1, 3, 5, 7, AND 9
     Route: 042
  6. LEUCOVORIN. [Suspect]
     Active Substance: LEUCOVORIN
     Indication: CENTRAL NERVOUS SYSTEM LYMPHOMA
     Dosage: ON WEEKS 1, 3, 5, 7, AND 9
     Route: 042

REACTIONS (15)
  - Ototoxicity [Unknown]
  - Skin toxicity [Unknown]
  - Metabolic disorder [Unknown]
  - Ocular toxicity [Unknown]
  - Febrile neutropenia [Unknown]
  - Gastrointestinal toxicity [Unknown]
  - Urogenital disorder [Unknown]
  - Hepatotoxicity [Unknown]
  - Nephropathy toxic [Unknown]
  - Cardiotoxicity [Unknown]
  - Haematotoxicity [Unknown]
  - Pain [Unknown]
  - Coagulopathy [Unknown]
  - Toxicity to various agents [Unknown]
  - Neurotoxicity [Unknown]
